FAERS Safety Report 7887951-0 (Version None)
Quarter: 2011Q4

REPORT INFORMATION
  Report Type: 
  Country: None (occurrence: None)
  Receive Date: 20111101
  Receipt Date: 20111019
  Transmission Date: 20120403
  Serious: Yes (Other)
  Sender: FDA-Public Use
  Company Number: DSU-2011-07843

PATIENT

DRUGS (4)
  1. MICARDIS [Concomitant]
  2. PROCARDIN (NIFEDIPINE) (NIFEDIPINE) [Concomitant]
  3. OLMESARTAN MEDOXOMIL [Suspect]
     Indication: HYPERTENSION
  4. DIURETICS (DIURETICS) [Concomitant]

REACTIONS (1)
  - BLOOD PRESSURE INCREASED [None]
